FAERS Safety Report 7658252-0 (Version None)
Quarter: 2011Q3

REPORT INFORMATION
  Report Type: 
  Country: None (occurrence: None)
  Receive Date: 20110804
  Receipt Date: 20110804
  Transmission Date: 20111222
  Serious: No
  Sender: FDA-Public Use
  Company Number: None

PATIENT
  Age: 77 Year
  Sex: Female
  Weight: 89.8122 kg

DRUGS (1)
  1. ARICEPT 23 MG DAILY ORAL [Suspect]
     Indication: DEMENTIA
     Dosage: 23MG DAILY ORAL
     Route: 048
     Dates: start: 20110213, end: 20110401

REACTIONS (3)
  - NIGHTMARE [None]
  - AMNESIA [None]
  - PRODUCT SUBSTITUTION ISSUE [None]
